FAERS Safety Report 9835514 (Version 2)
Quarter: 2014Q1

REPORT INFORMATION
  Report Type: Spontaneous
  Country: US (occurrence: US)
  Receive Date: 20140122
  Receipt Date: 20140122
  Transmission Date: 20141002
  Serious: Yes (Hospitalization)
  Sender: FDA-Public Use
  Company Number: US-BRISTOL-MYERS SQUIBB COMPANY-19758994

PATIENT
  Age: 80 Year
  Sex: Female

DRUGS (14)
  1. ELIQUIS [Suspect]
     Indication: CEREBROVASCULAR ACCIDENT PROPHYLAXIS
     Route: 048
     Dates: start: 20130418, end: 20131023
  2. ELIQUIS [Suspect]
     Indication: ATRIAL FIBRILLATION
     Route: 048
     Dates: start: 20130418, end: 20131023
  3. WARFARIN SODIUM [Suspect]
     Indication: ATRIAL FIBRILLATION
  4. WARFARIN SODIUM [Suspect]
     Indication: CEREBROVASCULAR ACCIDENT PROPHYLAXIS
  5. ASPIRIN [Suspect]
  6. METOPROLOL [Concomitant]
     Indication: HYPERTENSION
     Route: 048
  7. ATORVASTATIN [Concomitant]
     Indication: BLOOD CHOLESTEROL
     Route: 048
  8. MULTAQ [Concomitant]
     Indication: ATRIAL FIBRILLATION
     Route: 048
  9. ANASTROZOLE [Concomitant]
     Indication: BREAST CANCER
     Route: 048
  10. MIRALAX [Concomitant]
     Route: 048
  11. CALCIUM [Concomitant]
     Dosage: 1DF- 1 TAB
  12. LIPITOR [Concomitant]
     Route: 048
  13. ARIMIDEX [Concomitant]
     Route: 048
  14. TYLENOL EXTRA STRENGTH [Concomitant]
     Route: 048

REACTIONS (2)
  - Gastrointestinal haemorrhage [Recovered/Resolved]
  - Hypovolaemic shock [Unknown]
